FAERS Safety Report 23137124 (Version 2)
Quarter: 2023Q4

REPORT INFORMATION
  Report Type: Report from Study
  Country: BR (occurrence: BR)
  Receive Date: 20231102
  Receipt Date: 20231113
  Transmission Date: 20240110
  Serious: Yes (Hospitalization)
  Sender: FDA-Public Use
  Company Number: BR-JNJFOC-20231062156

PATIENT
  Age: 57 Year
  Sex: Female
  Weight: 84 kg

DRUGS (1)
  1. SIMPONI [Suspect]
     Active Substance: GOLIMUMAB
     Indication: Rheumatoid arthritis
     Route: 058
     Dates: start: 20230927

REACTIONS (4)
  - Cardiac failure [Not Recovered/Not Resolved]
  - Urinary tract infection [Recovered/Resolved]
  - Cardiomegaly [Not Recovered/Not Resolved]
  - Arthralgia [Unknown]
